FAERS Safety Report 12834486 (Version 12)
Quarter: 2018Q4

REPORT INFORMATION
  Report Type: Spontaneous
  Country: US (occurrence: US)
  Receive Date: 20161010
  Receipt Date: 20181003
  Transmission Date: 20190204
  Serious: Yes (Life-Threatening, Hospitalization, Other)
  Sender: FDA-Public Use
  Company Number: US-PFIZER INC-2016465330

PATIENT
  Age: 63 Year
  Sex: Female

DRUGS (23)
  1. LYRICA [Suspect]
     Active Substance: PREGABALIN
     Indication: TOXIC NEUROPATHY
     Dosage: 15 MG, 3X/DAY
     Dates: start: 2008
  2. LYRICA [Suspect]
     Active Substance: PREGABALIN
     Dosage: 150 MG, UNK
  3. IBUPROFEN. [Concomitant]
     Active Substance: IBUPROFEN
     Indication: DIABETIC NEUROPATHY
     Dosage: 800 MG, 3X/DAY
  4. IBUPROFEN. [Concomitant]
     Active Substance: IBUPROFEN
     Indication: ARTHRALGIA
  5. LORTAB [Concomitant]
     Active Substance: ACETAMINOPHEN\HYDROCODONE BITARTRATE
     Dosage: UNK
  6. NORCO [Concomitant]
     Active Substance: ACETAMINOPHEN\HYDROCODONE BITARTRATE
     Indication: PAIN
     Dosage: 10-325
  7. FUROSEMIDE. [Concomitant]
     Active Substance: FUROSEMIDE
     Indication: PERICARDIAL EFFUSION
     Dosage: 40 MG, 1X/DAY
     Dates: start: 2016
  8. LYRICA [Suspect]
     Active Substance: PREGABALIN
     Indication: NEURALGIA
     Dosage: 150 UNK, UNK
     Dates: start: 201606
  9. ASPIRIN. [Concomitant]
     Active Substance: ASPIRIN
     Indication: CEREBROVASCULAR ACCIDENT
  10. LANTUS [Concomitant]
     Active Substance: INSULIN GLARGINE
     Indication: DIABETES MELLITUS
     Dosage: UNK (30 UNITS ON PEN)
  11. LYRICA [Suspect]
     Active Substance: PREGABALIN
     Dosage: 3 DF, DAILY
  12. FUROSEMIDE. [Concomitant]
     Active Substance: FUROSEMIDE
     Indication: PLEURAL EFFUSION
  13. ASPIRIN. [Concomitant]
     Active Substance: ASPIRIN
     Indication: MYOCARDIAL INFARCTION
     Dosage: 81 MG, 1X/DAY
  14. LYRICA [Suspect]
     Active Substance: PREGABALIN
     Indication: NEUROPATHY PERIPHERAL
     Dosage: 150 MG, 3X/DAY
     Route: 048
     Dates: end: 20170612
  15. LYRICA [Suspect]
     Active Substance: PREGABALIN
     Indication: FIBROMYALGIA
     Dosage: 150 MG, 1X/DAY
     Dates: start: 20170613, end: 20170615
  16. ALLERGY [Concomitant]
     Active Substance: UNSPECIFIED INGREDIENT
     Indication: SINUSITIS
     Dosage: 25 MG, 3X/DAY
  17. CYMBALTA [Concomitant]
     Active Substance: DULOXETINE HYDROCHLORIDE
     Dosage: UNK
  18. TOUJEO [Concomitant]
     Active Substance: INSULIN GLARGINE
     Dosage: 30 IU, 1X/DAY
  19. ACETAMINOPHEN W/HYDROCODONE [Concomitant]
     Active Substance: ACETAMINOPHEN\HYDROCODONE
     Indication: PAIN
     Dosage: 1 DF (HYDROCODONE-10 ACETAMINOPHEN-325 MG), 1 EVERY 6 HOURS
  20. ATORVASTATIN [Concomitant]
     Active Substance: ATORVASTATIN
     Dosage: 20 MG, 1X/DAY (ONE TABLET, IN THE EVENING)
     Dates: start: 2016
  21. LYRICA [Suspect]
     Active Substance: PREGABALIN
     Indication: DIABETIC NEUROPATHY
     Dosage: 150 MG, 3X/DAY
  22. IBUPROFEN. [Concomitant]
     Active Substance: IBUPROFEN
     Indication: INFLAMMATION
  23. FENTANYL. [Concomitant]
     Active Substance: FENTANYL
     Dosage: UNK
     Route: 062

REACTIONS (21)
  - Myocardial infarction [Recovered/Resolved]
  - Pain in extremity [Unknown]
  - Paraesthesia [Unknown]
  - Decreased appetite [Unknown]
  - Burning sensation [Unknown]
  - Neuropathy peripheral [Not Recovered/Not Resolved]
  - Drug ineffective [Unknown]
  - Pain [Not Recovered/Not Resolved]
  - Gait disturbance [Unknown]
  - Hot flush [Unknown]
  - Incorrect dose administered [Unknown]
  - Condition aggravated [Not Recovered/Not Resolved]
  - Emotional distress [Unknown]
  - Retching [Not Recovered/Not Resolved]
  - Discomfort [Not Recovered/Not Resolved]
  - Withdrawal syndrome [Unknown]
  - Neuropathy peripheral [Not Recovered/Not Resolved]
  - Intentional product misuse [Unknown]
  - Nausea [Not Recovered/Not Resolved]
  - Insomnia [Not Recovered/Not Resolved]
  - Cough [Unknown]

NARRATIVE: CASE EVENT DATE: 2013
